FAERS Safety Report 9982293 (Version 1)
Quarter: 2014Q1

REPORT INFORMATION
  Report Type: Spontaneous
  Country: US (occurrence: None)
  Receive Date: 20140306
  Receipt Date: 20140306
  Transmission Date: 20141002
  Serious: Yes (Hospitalization)
  Sender: FDA-Public Use
  Company Number: None

PATIENT
  Age: 57 Year
  Sex: Male
  Weight: 77.1 kg

DRUGS (6)
  1. 5-FLUOROURACIL (5-FU) [Suspect]
  2. IRINOTECAN [Suspect]
  3. OXALIPLATIN (ELOXATIN) [Suspect]
  4. LISINOPRIL [Concomitant]
  5. LOVASTATIN [Concomitant]
  6. METOPROLOL [Concomitant]

REACTIONS (5)
  - Fatigue [None]
  - Chills [None]
  - Abdominal pain lower [None]
  - Aspartate aminotransferase increased [None]
  - Alanine aminotransferase increased [None]
